FAERS Safety Report 7332865-8 (Version None)
Quarter: 2011Q1

REPORT INFORMATION
  Report Type: 
  Country: None (occurrence: None)
  Receive Date: 20110304
  Receipt Date: 20110221
  Transmission Date: 20110831
  Serious: Yes (Other)
  Sender: FDA-Public Use
  Company Number: PHHY2011AU13915

PATIENT
  Sex: Female

DRUGS (1)
  1. ESTRADERM [Suspect]
     Dosage: 25 UG, UNK
     Route: 062
     Dates: start: 20101001

REACTIONS (7)
  - MENOPAUSAL SYMPTOMS [None]
  - DIZZINESS [None]
  - INCREASED APPETITE [None]
  - DRY MOUTH [None]
  - VISION BLURRED [None]
  - COORDINATION ABNORMAL [None]
  - NAUSEA [None]
